FAERS Safety Report 20168658 (Version 1)
Quarter: 2021Q4

REPORT INFORMATION
  Report Type: Spontaneous
  Country: US (occurrence: US)
  Receive Date: 20211210
  Receipt Date: 20211210
  Transmission Date: 20220303
  Serious: No
  Sender: FDA-Public Use
  Company Number: US-TEVA-2021-US-1978397

PATIENT
  Age: 48 Year
  Sex: Male

DRUGS (2)
  1. PREDNISONE [Suspect]
     Active Substance: PREDNISONE
     Route: 065
  2. LENVIMA [Suspect]
     Active Substance: LENVATINIB
     Dosage: 18 MILLIGRAM DAILY;
     Route: 048

REACTIONS (1)
  - Blood pressure increased [Unknown]
